FAERS Safety Report 16683535 (Version 1)
Quarter: 2019Q3

REPORT INFORMATION
  Report Type: Spontaneous
  Country: US (occurrence: US)
  Receive Date: 20190624
  Receipt Date: 20190624
  Transmission Date: 20191004
  Serious: Yes (Hospitalization)
  Sender: FDA-Public Use
  Company Number: None

PATIENT
  Sex: Male

DRUGS (6)
  1. ATORVASTATIN TAB [Concomitant]
     Active Substance: ATORVASTATIN
  2. ESBRIET [Suspect]
     Active Substance: PIRFENIDONE
     Indication: IDIOPATHIC PULMONARY FIBROSIS
     Dosage: 29/MAR TO ONGOING
     Route: 048
  3. RAMIPRIL CAP [Concomitant]
  4. MULTI-VIT/TAB [Concomitant]
  5. OMEPRAZOLE  TAB [Concomitant]
  6. BYSTOLIC TAB [Concomitant]

REACTIONS (1)
  - Abdominal operation [None]
